FAERS Safety Report 7959101-3 (Version None)
Quarter: 2011Q4

REPORT INFORMATION
  Report Type: 
  Country: None (occurrence: None)
  Receive Date: 20111206
  Receipt Date: 20111206
  Transmission Date: 20120403
  Serious: Yes (Other)
  Sender: FDA-Public Use
  Company Number: None

PATIENT
  Age: 37 Year
  Sex: Female
  Weight: 76.657 kg

DRUGS (2)
  1. LEVAQUIN [Suspect]
     Indication: PNEUMONIA
     Dosage: TWICE DAILY
     Route: 048
     Dates: start: 20110916, end: 20111007
  2. LEVAQUIN [Suspect]
     Indication: LUNG INFECTION
     Dosage: TWICE DAILY
     Route: 048
     Dates: start: 20110916, end: 20111007

REACTIONS (1)
  - SKIN EXFOLIATION [None]
